FAERS Safety Report 14339506 (Version 2)
Quarter: 2018Q1

REPORT INFORMATION
  Report Type: Spontaneous
  Country: FR (occurrence: FR)
  Receive Date: 20171230
  Receipt Date: 20180112
  Transmission Date: 20180509
  Serious: Yes (Congenital Anomaly, Other)
  Sender: FDA-Public Use
  Company Number: FR-AUROBINDO-AUR-APL-2017-48434

PATIENT

DRUGS (2)
  1. IBUPROFEN TABLETS [Suspect]
     Active Substance: IBUPROFEN
     Dosage: 400 MG, SINGLE ; IN TOTAL
     Route: 064
  2. IBUPROFEN TABLETS [Suspect]
     Active Substance: IBUPROFEN
     Indication: PRODUCT USED FOR UNKNOWN INDICATION
     Dosage: 400 MG, SINGLE ; IN TOTAL
     Route: 064

REACTIONS (3)
  - Tachycardia foetal [Recovered/Resolved]
  - Maternal exposure during pregnancy [Recovered/Resolved]
  - Ductus arteriosus premature closure [Recovered/Resolved]
